FAERS Safety Report 10175552 (Version 9)
Quarter: 2018Q2

REPORT INFORMATION
  Report Type: Report from Study
  Country: CA (occurrence: CA)
  Receive Date: 20140516
  Receipt Date: 20180622
  Transmission Date: 20180711
  Serious: Yes (Hospitalization, Other)
  Sender: FDA-Public Use
  Company Number: CA-ROCHE-1076475

PATIENT
  Age: 68 Year
  Sex: Female
  Weight: 68 kg

DRUGS (6)
  1. PAMIDRONATE [Concomitant]
     Active Substance: PAMIDRONATE DISODIUM
  2. ARAVA [Concomitant]
     Active Substance: LEFLUNOMIDE
  3. ACTEMRA [Suspect]
     Active Substance: TOCILIZUMAB
     Indication: RHEUMATOID ARTHRITIS
     Route: 042
     Dates: start: 20101005
  4. ATACAND [Concomitant]
     Active Substance: CANDESARTAN CILEXETIL
  5. ELTROXIN [Concomitant]
     Active Substance: LEVOTHYROXINE
  6. FLUCONAZOLE. [Concomitant]
     Active Substance: FLUCONAZOLE

REACTIONS (7)
  - Eye ulcer [Recovering/Resolving]
  - Oropharyngeal pain [Not Recovered/Not Resolved]
  - Cough [Not Recovered/Not Resolved]
  - Eyelid ptosis [Unknown]
  - Weight increased [Recovering/Resolving]
  - Pneumonia [Recovered/Resolved]
  - Dry eye [Unknown]

NARRATIVE: CASE EVENT DATE: 201204
